FAERS Safety Report 8722349 (Version 3)
Quarter: 2013Q4

REPORT INFORMATION
  Report Type: Spontaneous
  Country: US (occurrence: US)
  Receive Date: 20120814
  Receipt Date: 20131031
  Transmission Date: 20140711
  Serious: Yes (Death, Hospitalization)
  Sender: FDA-Public Use
  Company Number: US-009507513-1208USA004183

PATIENT
  Age: 78 Year
  Sex: Female

DRUGS (8)
  1. INVANZ [Suspect]
     Indication: URINARY TRACT INFECTION
     Dosage: 1 MG, QD
     Route: 041
  2. LASIX (FUROSEMIDE SODIUM) [Concomitant]
  3. LISINOPRIL [Concomitant]
  4. METOPROLOL [Concomitant]
  5. PRAVACHOL [Concomitant]
  6. ZOLOFT [Concomitant]
  7. TRAMADOL HYDROCHLORIDE [Concomitant]
  8. COUMADIN [Concomitant]

REACTIONS (1)
  - Clostridium difficile sepsis [Fatal]
